FAERS Safety Report 5159955-2 (Version None)
Quarter: 2006Q4

REPORT INFORMATION
  Report Type: 
  Country: None (occurrence: None)
  Receive Date: 20061117
  Receipt Date: 20061113
  Transmission Date: 20070319
  Serious: Yes (Death, Hospitalization)
  Sender: FDA-Public Use
  Company Number: GXKR2006US07279

PATIENT
  Age: 6 Year
  Sex: Male

DRUGS (1)
  1. METHADONE HCL [Suspect]

REACTIONS (12)
  - ACCIDENTAL EXPOSURE [None]
  - BRADYCARDIA [None]
  - BRAIN OEDEMA [None]
  - CARDIO-RESPIRATORY ARREST [None]
  - ELECTROMECHANICAL DISSOCIATION [None]
  - HYPERCAPNIA [None]
  - HYPOTENSION [None]
  - MYDRIASIS [None]
  - PULMONARY HAEMORRHAGE [None]
  - PUPIL FIXED [None]
  - VENTRICULAR FIBRILLATION [None]
  - VENTRICULAR TACHYCARDIA [None]
